FAERS Safety Report 22272953 (Version 1)
Quarter: 2023Q2

REPORT INFORMATION
  Report Type: Spontaneous
  Country: PH (occurrence: PH)
  Receive Date: 20230502
  Receipt Date: 20230502
  Transmission Date: 20230721
  Serious: Yes (Other)
  Sender: FDA-Public Use
  Company Number: PH-009507513-2304PHL010476

PATIENT
  Age: 13 Year

DRUGS (1)
  1. INVANZ [Suspect]
     Active Substance: ERTAPENEM SODIUM
     Dosage: 1 VIAL FREQUENCY

REACTIONS (3)
  - Peritonitis [Unknown]
  - Seizure [Unknown]
  - Catheter placement [Unknown]
